FAERS Safety Report 10149816 (Version 2)
Quarter: 2014Q2

REPORT INFORMATION
  Report Type: Spontaneous
  Country: SE (occurrence: None)
  Receive Date: 20140430
  Receipt Date: 20140610
  Transmission Date: 20141212
  Serious: Yes (Hospitalization, Other)
  Sender: FDA-Public Use
  Company Number: AUR-APL-2014-05167

PATIENT
  Age: 60 Year
  Sex: Male

DRUGS (3)
  1. METOPROLOL [Suspect]
     Indication: HEART RATE INCREASED
     Dosage: 100 MG (100 MG, 1 IN 1 D), UNKNOWN
     Route: 048
     Dates: start: 20130726, end: 20131213
  2. TROMBYL [Suspect]
     Indication: PRODUCT USED FOR UNKNOWN INDICATION
     Dates: start: 20131220, end: 20131227
  3. ADALAT [Suspect]
     Indication: PRODUCT USED FOR UNKNOWN INDICATION
     Dates: start: 20131219, end: 20131223

REACTIONS (6)
  - Skin reaction [None]
  - Discomfort [None]
  - Antinuclear antibody positive [None]
  - Drug eruption [None]
  - Skin ulcer [None]
  - Systemic sclerosis [None]
